FAERS Safety Report 4545986-X (Version None)
Quarter: 2005Q1

REPORT INFORMATION
  Report Type: 
  Country: None (occurrence: None)
  Receive Date: 20050105
  Receipt Date: 20050105
  Transmission Date: 20050727
  Serious: Yes (Life-Threatening)
  Sender: FDA-Public Use
  Company Number: None

PATIENT
  Age: 47 Year
  Sex: Female
  Weight: 95.1 kg

DRUGS (1)
  1. ALFENTANIL [Suspect]
     Indication: INDUCTION OF ANAESTHESIA
     Dosage: 30MCG   ONCE   INTRAVENOU
     Route: 042
     Dates: start: 20041015, end: 20041015

REACTIONS (4)
  - ANAPHYLACTIC REACTION [None]
  - BLOOD PRESSURE SYSTOLIC DECREASED [None]
  - DYSPNOEA [None]
  - RESPIRATORY DISTRESS [None]
